FAERS Safety Report 25745713 (Version 2)
Quarter: 2025Q4

REPORT INFORMATION
  Report Type: Spontaneous
  Country: US (occurrence: US)
  Receive Date: 20250901
  Receipt Date: 20251217
  Transmission Date: 20260117
  Serious: No
  Sender: JOHNSON AND JOHNSON
  Company Number: US-JNJFOC-20250831517

PATIENT
  Age: 60 Year
  Sex: Male

DRUGS (2)
  1. RILPIVIRINE [Suspect]
     Active Substance: RILPIVIRINE
     Indication: HIV infection
     Dosage: DOSAGE1: EXPDT=31-JUL-2027
     Dates: start: 20230414, end: 20250823
  2. CABOTEGRAVIR [Suspect]
     Active Substance: CABOTEGRAVIR
     Indication: HIV infection
     Dosage: DOSAGE1: EXPDT=31-JUL-2027
     Dates: start: 20230414, end: 20250823

REACTIONS (1)
  - Injection site atrophy [Unknown]

NARRATIVE: CASE EVENT DATE: 20250823
